FAERS Safety Report 24066576 (Version 1)
Quarter: 2024Q3

REPORT INFORMATION
  Report Type: Spontaneous
  Country: FR (occurrence: None)
  Receive Date: 20240709
  Receipt Date: 20240709
  Transmission Date: 20241016
  Serious: Yes (Death, Other)
  Sender: ASTRAZENECA
  Company Number: 2024A156147

PATIENT
  Age: 59 Year
  Sex: Male
  Weight: 83.8 kg

DRUGS (1)
  1. DURVALUMAB [Suspect]
     Active Substance: DURVALUMAB
     Indication: Non-small cell lung cancer
     Dates: start: 20190708, end: 20200525

REACTIONS (7)
  - Metastases to meninges [Fatal]
  - Malignant neoplasm progression [Unknown]
  - Asthenia [Unknown]
  - Oesophagitis [Unknown]
  - Cough [Unknown]
  - Off label use [Unknown]
  - Hypothyroidism [Unknown]
